FAERS Safety Report 5452216-3 (Version None)
Quarter: 2007Q3

REPORT INFORMATION
  Report Type: 
  Country: None (occurrence: None)
  Receive Date: 20070912
  Receipt Date: 20070829
  Transmission Date: 20080115
  Serious: Yes (Other)
  Sender: FDA-Public Use
  Company Number: PI-02009

PATIENT
  Age: 76 Year
  Sex: Male

DRUGS (1)
  1. CHLORAPREP ONE-STEP [Suspect]
     Indication: PREOPERATIVE CARE
     Dosage: 10.5 ML, ONCE, TOPICAL
     Route: 061
     Dates: start: 20070619

REACTIONS (2)
  - BURNS FIRST DEGREE [None]
  - IATROGENIC INJURY [None]
